FAERS Safety Report 17398679 (Version 1)
Quarter: 2020Q1

REPORT INFORMATION
  Report Type: Spontaneous
  Country: US (occurrence: US)
  Receive Date: 20200210
  Receipt Date: 20200210
  Transmission Date: 20200409
  Serious: No
  Sender: FDA-Public Use
  Company Number: US-VAYAPHARMA-2018-US-016488

PATIENT
  Age: 39 Year
  Sex: Female

DRUGS (1)
  1. VAYARIN (NON-SPECIFIC) [Suspect]
     Active Substance: DOCONEXENT\ICOSAPENT\PHOSPHATIDYL SERINE
     Indication: ATTENTION DEFICIT/HYPERACTIVITY DISORDER
     Dosage: 1-2 CAPS
     Route: 048

REACTIONS (6)
  - Intentional product misuse [Unknown]
  - Mood altered [Unknown]
  - Aggression [Unknown]
  - Disturbance in attention [Unknown]
  - Intentional product use issue [Unknown]
  - Anxiety [Unknown]

NARRATIVE: CASE EVENT DATE: 20180925
